FAERS Safety Report 5126166-6 (Version None)
Quarter: 2006Q3

REPORT INFORMATION
  Report Type: 
  Country: None (occurrence: None)
  Receive Date: 20060823
  Receipt Date: 20051108
  Transmission Date: 20061208
  Serious: Yes (Hospitalization, Other)
  Sender: FDA-Public Use
  Company Number: 2005131319

PATIENT
  Sex: Female
  Weight: 105.2345 kg

DRUGS (2)
  1. NORVASC [Suspect]
     Indication: HYPERTENSION
     Dosage: 10 MG (10 MG, 1 IN 1 D), UNKNOWN
     Dates: start: 19950101, end: 20050101
  2. FLUOROURACIL [Suspect]
     Dosage: UNK (UNK, UNKNOWN), UNKNOWN

REACTIONS (5)
  - ANXIETY [None]
  - CHEST PAIN [None]
  - HYPERSENSITIVITY [None]
  - PYREXIA [None]
  - VOMITING [None]
